FAERS Safety Report 6047782-3 (Version None)
Quarter: 2009Q1

REPORT INFORMATION
  Report Type: 
  Country: None (occurrence: None)
  Receive Date: 20090123
  Receipt Date: 20090121
  Transmission Date: 20090719
  Serious: Yes (Death)
  Sender: FDA-Public Use
  Company Number: US-ASTRAZENECA-2009UW01586

PATIENT
  Age: 84 Year
  Sex: Female

DRUGS (11)
  1. ARIMIDEX [Suspect]
     Route: 048
     Dates: start: 20071101
  2. ZETIA [Concomitant]
  3. TYLENOL W/ CODEINE NO. 3 [Concomitant]
  4. MICARDIS [Concomitant]
  5. TIAZAC [Concomitant]
  6. LOPRESSOR [Concomitant]
  7. LANOXIN [Concomitant]
  8. COUMADIN [Concomitant]
  9. SYNTHROID [Concomitant]
  10. LOMOTIL [Concomitant]
  11. BENADRYL [Concomitant]

REACTIONS (1)
  - MYOCARDIAL ISCHAEMIA [None]
